FAERS Safety Report 10810513 (Version 1)
Quarter: 2015Q1

REPORT INFORMATION
  Report Type: Spontaneous
  Country: US (occurrence: None)
  Receive Date: 20150213
  Receipt Date: 20150213
  Transmission Date: 20150721
  Serious: Yes (Life-Threatening, Hospitalization, Disabling)
  Sender: FDA-Public Use
  Company Number: None

PATIENT
  Age: 41 Year
  Sex: Female
  Weight: 81.74 kg

DRUGS (6)
  1. VALIUM [Concomitant]
     Active Substance: DIAZEPAM
  2. WELLBUTRIN [Concomitant]
     Active Substance: BUPROPION HYDROCHLORIDE
  3. ADVIL [Concomitant]
     Active Substance: IBUPROFEN
  4. VITAMIN D [Concomitant]
     Active Substance: CHOLECALCIFEROL
  5. CYMBALTA [Concomitant]
     Active Substance: DULOXETINE HYDROCHLORIDE
  6. REBIF [Suspect]
     Active Substance: INTERFERON BETA-1A
     Indication: MULTIPLE SCLEROSIS
     Dosage: 0.44 MCG 1 SHOT 3 TIMES WEEK INJECTION
     Dates: start: 2010, end: 201008

REACTIONS (9)
  - Self esteem decreased [None]
  - Stab wound [None]
  - Depression [None]
  - Intentional self-injury [None]
  - Loss of employment [None]
  - Post-traumatic stress disorder [None]
  - Partner stress [None]
  - Suicidal ideation [None]
  - Laceration [None]

NARRATIVE: CASE EVENT DATE: 201408
